FAERS Safety Report 24376551 (Version 6)
Quarter: 2025Q1

REPORT INFORMATION
  Report Type: Report from Study
  Country: US (occurrence: US)
  Receive Date: 20240930
  Receipt Date: 20250228
  Transmission Date: 20250408
  Serious: Yes (Other)
  Sender: TAKEDA
  Company Number: US-TAKEDA-2024TUS093775

PATIENT
  Age: 35 Year
  Sex: Female

DRUGS (3)
  1. VEDOLIZUMAB [Suspect]
     Active Substance: VEDOLIZUMAB
     Indication: Colitis ulcerative
  2. VEDOLIZUMAB [Suspect]
     Active Substance: VEDOLIZUMAB
     Indication: Colitis ulcerative
     Dosage: 108 MILLIGRAM, Q2WEEKS
     Dates: start: 202409
  3. VEDOLIZUMAB [Suspect]
     Active Substance: VEDOLIZUMAB
     Dosage: 108 MILLIGRAM, Q2WEEKS
     Dates: start: 20241004, end: 20241031

REACTIONS (16)
  - Colitis ulcerative [Unknown]
  - Rash [Not Recovered/Not Resolved]
  - Injection site haemorrhage [Recovered/Resolved]
  - General physical health deterioration [Unknown]
  - Stress [Unknown]
  - Visual impairment [Unknown]
  - Frustration tolerance decreased [Unknown]
  - Malaise [Unknown]
  - Feeling hot [Recovered/Resolved]
  - Psoriasis [Not Recovered/Not Resolved]
  - Device malfunction [Recovering/Resolving]
  - Incorrect dose administered [Recovering/Resolving]
  - Pain in extremity [Recovered/Resolved]
  - Fatigue [Recovered/Resolved]
  - Injection site extravasation [Unknown]
  - COVID-19 [Recovered/Resolved]

NARRATIVE: CASE EVENT DATE: 20241004
